FAERS Safety Report 6956415-0 (Version None)
Quarter: 2010Q3

REPORT INFORMATION
  Report Type: 
  Country: None (occurrence: None)
  Receive Date: 20100830
  Receipt Date: 20100819
  Transmission Date: 20110219
  Serious: Yes (Hospitalization, Congenital Anomaly)
  Sender: FDA-Public Use
  Company Number: B0669420A

PATIENT
  Sex: Female

DRUGS (8)
  1. PAXIL [Suspect]
     Indication: ANXIETY
     Dosage: 20MG PER DAY
     Dates: start: 20051104, end: 20100802
  2. PAXIL [Suspect]
     Dosage: 10MG PER DAY
     Dates: start: 20100803
  3. DORMICUM [Suspect]
     Indication: SEDATION
     Dates: start: 20100728, end: 20100729
  4. LEVOTOMIN [Suspect]
     Indication: INSOMNIA
     Dosage: 25MG PER DAY
     Route: 065
     Dates: start: 20071017, end: 20071119
  5. LEVOTOMIN [Suspect]
     Dosage: 50MG PER DAY
     Dates: start: 20071120, end: 20091121
  6. LEVOTOMIN [Suspect]
     Dosage: 100MG PER DAY
     Dates: start: 20091122
  7. ROHYPNOL [Suspect]
     Indication: PRODUCT USED FOR UNKNOWN INDICATION
     Dosage: 3MG PER DAY
     Dates: start: 20040823, end: 20100802
  8. ROHYPNOL [Suspect]
     Indication: INSOMNIA
     Dosage: 2MG PER DAY
     Dates: start: 20100803

REACTIONS (5)
  - DRUG EXPOSURE DURING PREGNANCY [None]
  - DRUG EXPOSURE VIA BREAST MILK [None]
  - FEEDING DISORDER NEONATAL [None]
  - PERSISTENT FOETAL CIRCULATION [None]
  - SOMNOLENCE [None]
